FAERS Safety Report 13633879 (Version 1)
Quarter: 2017Q2

REPORT INFORMATION
  Report Type: Spontaneous
  Country: US (occurrence: US)
  Receive Date: 20170531
  Receipt Date: 20170531
  Transmission Date: 20170830
  Serious: No
  Sender: FDA-Public Use
  Company Number: US-ASTELLAS-1586878

PATIENT
  Sex: Male

DRUGS (17)
  1. LOSARTAN/HCTZ [Concomitant]
     Active Substance: HYDROCHLOROTHIAZIDE\LOSARTAN
  2. AMLODIPINE BESYLATE. [Concomitant]
     Active Substance: AMLODIPINE BESYLATE
  3. TARCEVA [Suspect]
     Active Substance: ERLOTINIB HYDROCHLORIDE
     Indication: LUNG NEOPLASM MALIGNANT
     Route: 048
     Dates: start: 20150325
  4. ONGLYZA [Concomitant]
     Active Substance: SAXAGLIPTIN HYDROCHLORIDE
     Dosage: 5 MG TABLETS; 2.5 MG TABLETS
     Route: 065
  5. CLOTRIMAZOLE. [Concomitant]
     Active Substance: CLOTRIMAZOLE
  6. ONDANSETRON [Concomitant]
     Active Substance: ONDANSETRON
  7. LIDOCAINE. [Concomitant]
     Active Substance: LIDOCAINE
  8. DEXAMETHASONE. [Concomitant]
     Active Substance: DEXAMETHASONE
  9. ASPIRIN. [Concomitant]
     Active Substance: ASPIRIN
  10. ATENOLOL. [Concomitant]
     Active Substance: ATENOLOL
  11. SYMBICORT [Concomitant]
     Active Substance: BUDESONIDE\FORMOTEROL FUMARATE DIHYDRATE
  12. TARCEVA [Suspect]
     Active Substance: ERLOTINIB HYDROCHLORIDE
     Route: 048
  13. TRADJENTA [Concomitant]
     Active Substance: LINAGLIPTIN
  14. GABAPENTIN. [Concomitant]
     Active Substance: GABAPENTIN
  15. XARELTO [Concomitant]
     Active Substance: RIVAROXABAN
  16. LOVASTATIN. [Concomitant]
     Active Substance: LOVASTATIN
  17. DOCQLACE [Concomitant]
     Active Substance: DOCUSATE SODIUM

REACTIONS (3)
  - Nausea [Not Recovered/Not Resolved]
  - Dizziness [Not Recovered/Not Resolved]
  - Diarrhoea [Recovered/Resolved]
